FAERS Safety Report 5163977-5 (Version None)
Quarter: 2006Q4

REPORT INFORMATION
  Report Type: 
  Country: None (occurrence: None)
  Receive Date: 20061124
  Receipt Date: 20061109
  Transmission Date: 20070319
  Serious: Yes (Death, Other)
  Sender: FDA-Public Use
  Company Number: 2006138939

PATIENT
  Age: 45 Year
  Sex: Female

DRUGS (3)
  1. ELETRIPTAN (ELETRIPTAN) [Suspect]
  2. FORVATRIPTAN (FROVATRIPTAN) [Suspect]
  3. ALMOTRIPTAN (ALMOTRIPTAN) [Suspect]

REACTIONS (6)
  - COLITIS ISCHAEMIC [None]
  - CONDITION AGGRAVATED [None]
  - DISSEMINATED INTRAVASCULAR COAGULATION [None]
  - ELECTROMECHANICAL DISSOCIATION [None]
  - GENERAL PHYSICAL HEALTH DETERIORATION [None]
  - MEDICATION ERROR [None]
